FAERS Safety Report 4896425-0 (Version None)
Quarter: 2006Q1

REPORT INFORMATION
  Report Type: 
  Country: None (occurrence: None)
  Receive Date: 20060131
  Receipt Date: 20060120
  Transmission Date: 20060701
  Serious: Yes (Other)
  Sender: FDA-Public Use
  Company Number: FR-JNJFOC-20060102719

PATIENT
  Age: 65 Year
  Sex: Male

DRUGS (6)
  1. REMICADE [Suspect]
     Route: 042
  2. REMICADE [Suspect]
     Dosage: 5TH INFUSION
     Route: 042
  3. REMICADE [Suspect]
     Route: 042
  4. REMICADE [Suspect]
     Indication: RHEUMATOID ARTHRITIS
     Route: 042
  5. METHOTREXATE [Concomitant]
     Dosage: METHOTREXATE WAS INITIATED MORE THAN 1 YEAR AFTER THE PATIENT WAS DIAGNOSED HIV POSITIVE.
     Route: 065
  6. CORTANCYL [Concomitant]
     Route: 065
     Dates: start: 19950501, end: 20030701

REACTIONS (10)
  - ARTHRALGIA [None]
  - ARTHRODESIS [None]
  - ARTHROPATHY [None]
  - BLADDER CANCER [None]
  - BRONCHITIS [None]
  - BRONCHOSPASM [None]
  - DYSPNOEA [None]
  - GALLBLADDER CANCER [None]
  - PNEUMONIA KLEBSIELLA [None]
  - TINEA PEDIS [None]
